FAERS Safety Report 10260905 (Version 16)
Quarter: 2015Q1

REPORT INFORMATION
  Report Type: Spontaneous
  Country: AT (occurrence: AT)
  Receive Date: 20140626
  Receipt Date: 20141209
  Transmission Date: 20150720
  Serious: Yes (Life-Threatening, Hospitalization, Other)
  Sender: FDA-Public Use
  Company Number: AT-ASTRAZENECA-2014SE45928

PATIENT
  Age: 39 Year
  Sex: Female
  Weight: 45 kg

DRUGS (55)
  1. SEROQUEL [Suspect]
     Active Substance: QUETIAPINE FUMARATE
     Route: 048
     Dates: start: 20130401, end: 20130422
  2. SEROQUEL [Suspect]
     Active Substance: QUETIAPINE FUMARATE
     Route: 048
     Dates: start: 20130329, end: 20130409
  3. CIPRALEX [Concomitant]
     Active Substance: ESCITALOPRAM OXALATE
     Route: 048
     Dates: start: 20130529, end: 20130529
  4. MIRTABENE [Concomitant]
     Active Substance: MIRTAZAPINE
     Route: 048
     Dates: start: 20130409, end: 20130419
  5. KALIORAL [Concomitant]
     Dates: start: 20130514
  6. SEROQUEL [Suspect]
     Active Substance: QUETIAPINE FUMARATE
     Route: 048
     Dates: start: 20130410, end: 20130424
  7. SEROQUEL [Suspect]
     Active Substance: QUETIAPINE FUMARATE
     Route: 048
     Dates: start: 20130425, end: 20130425
  8. SEROQUEL [Suspect]
     Active Substance: QUETIAPINE FUMARATE
     Route: 048
     Dates: start: 20130426, end: 20130529
  9. CIPRALEX [Concomitant]
     Active Substance: ESCITALOPRAM OXALATE
     Route: 048
     Dates: start: 20130329, end: 20130405
  10. IXEL [Concomitant]
     Active Substance: MILNACIPRAN HYDROCHLORIDE
     Dosage: 100 DAILY
     Dates: start: 20130326, end: 20130408
  11. COPEGUS [Concomitant]
     Active Substance: RIBAVIRIN
     Dosage: 800 DAILY
     Dates: end: 20130325
  12. NICORETTE [Concomitant]
     Active Substance: NICOTINE
     Dosage: 15 MG/16 HOURS
     Dates: start: 20130529
  13. ROKIPRIM [Concomitant]
     Dosage: 750 DAILY
     Route: 042
     Dates: start: 20130516, end: 20130516
  14. TUSSAMAG [Concomitant]
     Dosage: 1-3X/D 1MB
     Dates: start: 20130524
  15. LYRICA [Concomitant]
     Active Substance: PREGABALIN
     Dosage: 50 DAILY
     Dates: start: 20130523, end: 20130524
  16. IXEL [Concomitant]
     Active Substance: MILNACIPRAN HYDROCHLORIDE
     Dosage: 50 DAILY
     Dates: start: 20130409, end: 20130410
  17. MIRTABENE [Concomitant]
     Active Substance: MIRTAZAPINE
     Route: 048
     Dates: start: 20130321, end: 20130408
  18. NICORETTE [Concomitant]
     Active Substance: NICOTINE
     Dates: end: 20130514
  19. SOLUDACORTIN [Concomitant]
     Dosage: 500 DAILY
     Route: 042
     Dates: start: 20130515, end: 20130515
  20. SOLUDACORTIN [Concomitant]
     Dosage: 1000 DAILY
     Route: 042
     Dates: start: 20130518, end: 20130518
  21. ROKIPRIM [Concomitant]
     Dosage: 250 DAILY
     Route: 042
     Dates: start: 20130521, end: 20130521
  22. NOVALGIN [Concomitant]
     Active Substance: METAMIZOLE SODIUM
     Dosage: 2 DAILY
     Route: 042
     Dates: start: 20130517, end: 20130517
  23. NEBILAN [Concomitant]
     Dosage: 5 DAILY
     Dates: start: 20130528
  24. RIVOTRIL [Concomitant]
     Active Substance: CLONAZEPAM
     Dates: start: 20130508, end: 20130512
  25. SEROQUEL [Suspect]
     Active Substance: QUETIAPINE FUMARATE
     Route: 048
     Dates: start: 20130530
  26. CIPRALEX [Concomitant]
     Active Substance: ESCITALOPRAM OXALATE
     Route: 048
     Dates: start: 20130321, end: 20130328
  27. SERETIDE INHALATOR [Concomitant]
     Dates: end: 20130513
  28. NICORETTE [Concomitant]
     Active Substance: NICOTINE
     Dosage: 25 MG/16 HOURS
     Dates: start: 20130515, end: 20130528
  29. ZITHROMAX [Concomitant]
     Active Substance: AZITHROMYCIN DIHYDRATE
     Dosage: 1X1
     Dates: start: 20130524, end: 20130526
  30. LYRICA [Concomitant]
     Active Substance: PREGABALIN
     Dosage: 75 DAILY
     Dates: start: 20130525, end: 20130526
  31. LYRICA [Concomitant]
     Active Substance: PREGABALIN
     Dosage: 150 DAILY
     Dates: start: 20130528, end: 20130528
  32. CHLORHEXAMED [Concomitant]
  33. NEXIUM [Concomitant]
     Active Substance: ESOMEPRAZOLE MAGNESIUM
     Dosage: 40 DAILY
     Route: 048
     Dates: start: 20130525
  34. BERODUAL [Concomitant]
     Active Substance: FENOTEROL HYDROBROMIDE\IPRATROPIUM BROMIDE
     Dosage: 4X6 GGT
     Dates: start: 20130515
  35. MIRTABENE [Concomitant]
     Active Substance: MIRTAZAPINE
     Route: 048
     Dates: start: 20130529
  36. ROKIPRIM [Concomitant]
     Dosage: 500 DAILY
     Route: 042
     Dates: start: 20130515, end: 20130515
  37. KLACID [Concomitant]
     Active Substance: CLARITHROMYCIN
     Dosage: 1000 DAILY
     Dates: start: 20130530
  38. SEROQUEL [Suspect]
     Active Substance: QUETIAPINE FUMARATE
     Route: 048
     Dates: start: 20130325, end: 20130331
  39. INTERFERON [Suspect]
     Active Substance: INTERFERON
     Route: 065
     Dates: start: 201210, end: 20130513
  40. CIPRALEX [Concomitant]
     Active Substance: ESCITALOPRAM OXALATE
     Route: 048
     Dates: start: 20130530, end: 20130530
  41. MIRTABENE [Concomitant]
     Active Substance: MIRTAZAPINE
     Route: 048
     Dates: start: 20130517, end: 20130528
  42. LOVENOX [Concomitant]
     Active Substance: ENOXAPARIN SODIUM
     Dosage: 40 DAILY
     Dates: start: 20130514
  43. SOLUDACORTIN [Concomitant]
     Dosage: 50 DAILY
     Route: 042
     Dates: start: 20130521, end: 20130521
  44. NOVALGIN [Concomitant]
     Active Substance: METAMIZOLE SODIUM
     Dosage: 3 DAILY
     Route: 042
     Dates: start: 20130518, end: 20130518
  45. NOVALGIN [Concomitant]
     Active Substance: METAMIZOLE SODIUM
     Dosage: 1 DAILY
     Route: 042
     Dates: start: 20130528, end: 20130528
  46. SEROQUEL [Suspect]
     Active Substance: QUETIAPINE FUMARATE
     Route: 048
     Dates: start: 20130423, end: 20130424
  47. REBETOL [Suspect]
     Active Substance: RIBAVIRIN
     Route: 048
     Dates: start: 20130325, end: 20130514
  48. PEGASYS [Suspect]
     Active Substance: PEGINTERFERON ALFA-2A
     Dosage: 180 UG 1X/WK, SUNDAYS
     Route: 065
     Dates: end: 20130512
  49. LYRICA [Concomitant]
     Active Substance: PREGABALIN
     Dosage: 125 DAILY
     Dates: start: 20130527, end: 20130527
  50. LYRICA [Concomitant]
     Active Substance: PREGABALIN
     Dosage: 200 DAILY
     Dates: start: 20130529
  51. CIPRALEX [Concomitant]
     Active Substance: ESCITALOPRAM OXALATE
     Route: 048
     Dates: start: 20130406, end: 20130528
  52. IXEL [Concomitant]
     Active Substance: MILNACIPRAN HYDROCHLORIDE
     Dosage: 50 DAILY
     Dates: start: 20130325, end: 20130325
  53. MIRTABENE [Concomitant]
     Active Substance: MIRTAZAPINE
     Route: 048
     Dates: start: 20130420, end: 20130516
  54. NEXIUM [Concomitant]
     Active Substance: ESOMEPRAZOLE MAGNESIUM
     Dosage: 20 DAILY
     Route: 048
     Dates: start: 20130514, end: 20130524
  55. APREDNISOLON [Concomitant]
     Active Substance: PREDNISOLONE
     Dosage: 50 DAILY
     Dates: start: 20130524

REACTIONS (1)
  - Acute respiratory distress syndrome [Recovered/Resolved]

NARRATIVE: CASE EVENT DATE: 20130506
